FAERS Safety Report 24271402 (Version 1)
Quarter: 2024Q3

REPORT INFORMATION
  Report Type: Report from Study
  Country: US (occurrence: US)
  Receive Date: 20240901
  Receipt Date: 20240901
  Transmission Date: 20241017
  Serious: Yes (Hospitalization)
  Sender: Unknown Manufacturer
  Company Number: US-MTPC-MTDA2024-0018223

PATIENT
  Sex: Male

DRUGS (2)
  1. RADICAVA ORS [Suspect]
     Active Substance: EDARAVONE
     Indication: Amyotrophic lateral sclerosis
     Dosage: 5 MILLILITER, QD FOR 10 OUT OF 14 DAYS TEHN 14 DAYS OFF
     Route: 048
     Dates: start: 202305
  2. RADICAVA ORS [Suspect]
     Active Substance: EDARAVONE
     Indication: Amyotrophic lateral sclerosis
     Dosage: 5 MILLILITER, QD FOR 10 OUT OF 14 DAYS TEHN 14 DAYS OFF
     Route: 048
     Dates: start: 202305

REACTIONS (3)
  - Fibrin D dimer increased [Unknown]
  - Hypersensitivity [Unknown]
  - Urticaria [Unknown]
